FAERS Safety Report 7232747-6 (Version None)
Quarter: 2011Q1

REPORT INFORMATION
  Report Type: 
  Country: None (occurrence: None)
  Receive Date: 20110119
  Receipt Date: 20110107
  Transmission Date: 20110831
  Serious: Yes (Death, Hospitalization)
  Sender: FDA-Public Use
  Company Number: US-ELI_LILLY_AND_COMPANY-US201004005640

PATIENT
  Age: 81 Year
  Sex: Female

DRUGS (10)
  1. TYLENOL (CAPLET) [Concomitant]
  2. TRICOR [Concomitant]
  3. FORTEO [Suspect]
     Indication: OSTEOPOROSIS
     Dosage: 20 UG, 2/D
     Dates: start: 20091001, end: 20100406
  4. LOZOL [Concomitant]
  5. VERELAN [Concomitant]
  6. NEXIUM [Concomitant]
  7. ASPIRIN [Concomitant]
  8. ATARAX [Concomitant]
  9. FORTEO [Suspect]
     Dosage: 20 UG, 2/D
     Dates: start: 20100409
  10. MULTI-VITAMIN [Concomitant]

REACTIONS (4)
  - HAEMOGLOBIN DECREASED [None]
  - ACUTE RESPIRATORY FAILURE [None]
  - PNEUMONIA [None]
  - DEATH [None]
